FAERS Safety Report 9276710 (Version 1)
Quarter: 2013Q2

REPORT INFORMATION
  Report Type: Spontaneous
  Country: BR (occurrence: BR)
  Receive Date: 20130507
  Receipt Date: 20130507
  Transmission Date: 20140414
  Serious: Yes (Hospitalization, Other)
  Sender: FDA-Public Use
  Company Number: BR-ELI_LILLY_AND_COMPANY-BR201212006657

PATIENT
  Age: 74 Year
  Sex: Female

DRUGS (8)
  1. FORTEO [Suspect]
     Indication: OSTEOPOROSIS
     Dosage: 20 UG, QD
     Route: 058
     Dates: start: 201211
  2. MIRTAZAPINA [Concomitant]
     Dosage: 30 MG, QD
     Route: 065
  3. PARACETAMOL [Concomitant]
     Indication: PAIN
     Dosage: 500 MG, EVERY 6 HRS
     Route: 065
  4. OMEPRAZOL [Concomitant]
     Dosage: 20 MG, EACH MORNING
     Route: 065
  5. LOSARTAN [Concomitant]
     Dosage: 50 MG, QD
     Route: 065
  6. SINVASTATINA [Concomitant]
     Dosage: UNK, UNKNOWN
     Route: 065
  7. CALCIODEX [Concomitant]
     Dosage: UNK, BID
     Route: 065
  8. VITAMIN D3 [Concomitant]
     Dosage: 10 GTT, QD
     Route: 065

REACTIONS (11)
  - Fall [Unknown]
  - Contusion [Unknown]
  - Dysstasia [Unknown]
  - Pain [Unknown]
  - Pain in extremity [Not Recovered/Not Resolved]
  - Back pain [Unknown]
  - Asthenia [Not Recovered/Not Resolved]
  - Headache [Unknown]
  - Feeling abnormal [Unknown]
  - Sensation of heaviness [Unknown]
  - Swelling [Unknown]
